FAERS Safety Report 8807288 (Version 2)
Quarter: 2012Q4

REPORT INFORMATION
  Report Type: 
  Country: DE (occurrence: DE)
  Receive Date: 20120925
  Receipt Date: 20121002
  Transmission Date: 20130627
  Serious: Yes (Hospitalization)
  Sender: FDA-Public Use
  Company Number: DE-VERTEX PHARMACEUTICAL INC.-2012-021746

PATIENT
  Age: 51 Year
  Sex: Male
  Weight: 80 kg

DRUGS (9)
  1. INCIVO [Suspect]
     Indication: HEPATITIS C
     Dosage: UNK
     Route: 048
  2. INCIVO [Suspect]
     Dosage: Dosage Form: Tablet
     Route: 048
  3. PEGINTERFERON ALFA-2A [Suspect]
     Indication: HEPATITIS C
     Dosage: 180 ?g, UNK
     Route: 065
  4. PEGINTERFERON ALFA-2A [Suspect]
     Dosage: Dosage Form: Unspecified
  5. RIBAVIRIN [Suspect]
     Indication: HEPATITIS C
     Dosage: 1000 mg, UNK
     Route: 065
  6. TACROLIMUS [Suspect]
     Indication: IMMUNOSUPPRESSANT DRUG THERAPY
     Dosage: UNK
     Route: 065
  7. TACROLIMUS [Suspect]
     Dosage: Dosage Form: Unspecified
  8. STEROIDS NOS [Suspect]
     Indication: IMMUNOSUPPRESSANT DRUG THERAPY
     Dosage: UNK
     Route: 065
  9. STEROIDS NOS [Suspect]
     Dosage: Dosage Form: Unspecified

REACTIONS (1)
  - Pneumonia bacterial [Unknown]
